FAERS Safety Report 24152194 (Version 6)
Quarter: 2024Q4

REPORT INFORMATION
  Report Type: Spontaneous
  Country: US (occurrence: US)
  Receive Date: 20240730
  Receipt Date: 20241030
  Transmission Date: 20250114
  Serious: No
  Sender: BAYER HEALTHCARE PHARMACEUTICALS INC.
  Company Number: US-BAYER-2024A108429

PATIENT
  Sex: Female

DRUGS (1)
  1. ESTRADIOL [Suspect]
     Active Substance: ESTRADIOL
     Dosage: 0.1MG/1D 4TTSM US
     Route: 062

REACTIONS (4)
  - Hot flush [None]
  - Application site erythema [None]
  - Device adhesion issue [None]
  - Product physical issue [None]
